FAERS Safety Report 9696427 (Version 2)
Quarter: 2013Q4

REPORT INFORMATION
  Report Type: Spontaneous
  Country: US (occurrence: US)
  Receive Date: 20131119
  Receipt Date: 20131119
  Transmission Date: 20140711
  Serious: No
  Sender: FDA-Public Use
  Company Number: US-GILEAD-2013-0086874

PATIENT
  Sex: Female

DRUGS (4)
  1. LETAIRIS [Suspect]
     Indication: COR PULMONALE CHRONIC
     Dosage: 10 MG, QID
  2. TYVASO [Concomitant]
  3. ADCIRCA [Concomitant]
  4. WARFARIN SODIUM [Concomitant]

REACTIONS (3)
  - Malaise [Unknown]
  - Cough [Unknown]
  - Sinusitis [Unknown]
